FAERS Safety Report 23862838 (Version 1)
Quarter: 2024Q2

REPORT INFORMATION
  Report Type: Spontaneous
  Country: US (occurrence: None)
  Receive Date: 20240515
  Receipt Date: 20240515
  Transmission Date: 20240716
  Serious: Yes (Other)
  Sender: FDA-Public Use
  Company Number: None

PATIENT
  Age: 72 Year
  Sex: Male
  Weight: 87.75 kg

DRUGS (1)
  1. NIVOLUMAB [Suspect]
     Active Substance: NIVOLUMAB
     Indication: Bladder cancer
     Dosage: FREQUENCY : MONTHLY;?
     Route: 041
     Dates: start: 20231222, end: 20240510

REACTIONS (2)
  - Hypercalcaemia [None]
  - Infusion related reaction [None]

NARRATIVE: CASE EVENT DATE: 20240510
